FAERS Safety Report 4462189-8 (Version None)
Quarter: 2004Q3

REPORT INFORMATION
  Report Type: 
  Country: None (occurrence: None)
  Receive Date: 20040924
  Receipt Date: 20040908
  Transmission Date: 20050211
  Serious: Yes (Hospitalization)
  Sender: FDA-Public Use
  Company Number: DSA_24956_2004

PATIENT
  Sex: Female

DRUGS (4)
  1. VASOTEC [Suspect]
     Indication: HYPERTENSION
     Dosage: 20 MG Q DAY PO
     Route: 048
     Dates: start: 20040501
  2. HYDROCHLOROTHIAZIDE [Concomitant]
  3. NADOLOL [Concomitant]
  4. METFORMIN [Concomitant]

REACTIONS (2)
  - BLOOD PRESSURE INADEQUATELY CONTROLLED [None]
  - BLOOD PRESSURE INCREASED [None]
